FAERS Safety Report 23053975 (Version 1)
Quarter: 2023Q4

REPORT INFORMATION
  Report Type: Spontaneous
  Country: CN (occurrence: None)
  Receive Date: 20231011
  Receipt Date: 20231011
  Transmission Date: 20240109
  Serious: Yes (Hospitalization, Other)
  Sender: FDA-Public Use
  Company Number: CN-ROCHE-3435454

PATIENT
  Age: 47 Year
  Sex: Female
  Weight: 69 kg

DRUGS (1)
  1. HERCEPTIN [Suspect]
     Active Substance: TRASTUZUMAB
     Indication: Neoplasm
     Route: 041
     Dates: start: 20230927, end: 20230927

REACTIONS (6)
  - Pyrexia [Recovering/Resolving]
  - Acute pulmonary oedema [Recovering/Resolving]
  - Chills [Recovering/Resolving]
  - Tachypnoea [Recovered/Resolved]
  - Cough [Recovered/Resolved]
  - Hypersensitivity [Recovering/Resolving]

NARRATIVE: CASE EVENT DATE: 20230927
